FAERS Safety Report 9827198 (Version 1)
Quarter: 2014Q1

REPORT INFORMATION
  Report Type: Spontaneous
  Country: US (occurrence: US)
  Receive Date: 20140117
  Receipt Date: 20140117
  Transmission Date: 20141002
  Serious: No
  Sender: FDA-Public Use
  Company Number: US-GLAXOSMITHKLINE-A1047015A

PATIENT
  Sex: Male

DRUGS (4)
  1. PROMACTA [Suspect]
     Indication: HEPATITIS C
     Dosage: 25MG PER DAY
     Route: 048
  2. VICTRELIS [Suspect]
     Indication: HEPATITIS C
     Route: 065
  3. PEGASYS [Suspect]
     Indication: HEPATITIS C
  4. RIBAVIRIN [Suspect]
     Indication: HEPATITIS C

REACTIONS (8)
  - Nausea [Unknown]
  - Platelet count decreased [Unknown]
  - Rash [Unknown]
  - Asthenia [Unknown]
  - Somnolence [Unknown]
  - Arthralgia [Unknown]
  - Memory impairment [Unknown]
  - Insomnia [Unknown]
